FAERS Safety Report 20796548 (Version 1)
Quarter: 2022Q2

REPORT INFORMATION
  Report Type: Spontaneous
  Country: US (occurrence: US)
  Receive Date: 20220506
  Receipt Date: 20220506
  Transmission Date: 20220721
  Serious: Yes (Other)
  Sender: FDA-Public Use
  Company Number: US-TORRENT-00011847

PATIENT
  Sex: Male

DRUGS (1)
  1. DONEPEZIL HYDROCHLORIDE [Suspect]
     Active Substance: DONEPEZIL HYDROCHLORIDE
     Indication: Product used for unknown indication
     Dosage: UNKNOWN

REACTIONS (6)
  - Illness [Unknown]
  - Wrong product administered [Unknown]
  - Dizziness [Unknown]
  - Fall [Unknown]
  - Dysphagia [Unknown]
  - Unresponsive to stimuli [Unknown]
